FAERS Safety Report 17560142 (Version 1)
Quarter: 2020Q1

REPORT INFORMATION
  Report Type: Spontaneous
  Country: US (occurrence: US)
  Receive Date: 20200319
  Receipt Date: 20200319
  Transmission Date: 20200409
  Serious: No
  Sender: FDA-Public Use
  Company Number: US-PFIZER INC-2020117754

PATIENT
  Age: 58 Year
  Sex: Female

DRUGS (1)
  1. METHOTREXATE SODIUM. [Suspect]
     Active Substance: METHOTREXATE SODIUM
     Dosage: 10 MG, 2X/WEEK
     Route: 058
     Dates: start: 20181102

REACTIONS (4)
  - Fatigue [Unknown]
  - Chest discomfort [Unknown]
  - Diarrhoea [Unknown]
  - Cough [Unknown]
